FAERS Safety Report 4372805-7 (Version None)
Quarter: 2004Q2

REPORT INFORMATION
  Report Type: 
  Country: None (occurrence: None)
  Receive Date: 20040608
  Receipt Date: 20020424
  Transmission Date: 20050107
  Serious: Yes (Other)
  Sender: FDA-Public Use
  Company Number: PHNU2002DE01493

PATIENT
  Age: 73 Year
  Sex: Female
  Weight: 80 kg

DRUGS (2)
  1. FEMARA [Suspect]
     Indication: BREAST CANCER
     Dosage: 2.5MG/DAY
     Route: 048
     Dates: start: 20000821, end: 20020529
  2. PROGYNOVA [Concomitant]
     Route: 048
     Dates: start: 19830101

REACTIONS (13)
  - ALOPECIA [None]
  - ARTHRALGIA [None]
  - BLOOD CREATININE INCREASED [None]
  - BLOOD URIC ACID INCREASED [None]
  - BONE PAIN [None]
  - CONCOMITANT DISEASE AGGRAVATED [None]
  - HEPATIC ENZYME INCREASED [None]
  - HOT FLUSH [None]
  - HYPERHIDROSIS [None]
  - IMMOBILE [None]
  - OSTEOPOROSIS [None]
  - RENAL FUNCTION TEST ABNORMAL [None]
  - SLEEP DISORDER [None]
